FAERS Safety Report 8823300 (Version 2)
Quarter: 2015Q2

REPORT INFORMATION
  Report Type: Report from Study
  Country: US (occurrence: US)
  Receive Date: 20121003
  Receipt Date: 20150420
  Transmission Date: 20150821
  Serious: Yes (Death)
  Sender: FDA-Public Use
  Company Number: US-ROCHE-1135431

PATIENT
  Age: 27 Year
  Sex: Female

DRUGS (19)
  1. RITUXAN [Suspect]
     Active Substance: RITUXIMAB
     Indication: LYMPHOMA
     Dosage: ALSO RECEIVED ON 20/NOV/2006
     Route: 042
  2. RITUXAN [Suspect]
     Active Substance: RITUXIMAB
     Dosage: RECEIVED ON 26/JUN/2006, 17/JUL/2006, 07/AUG/2006
     Route: 042
  3. BENADRYL [Concomitant]
     Active Substance: DIPHENHYDRAMINE HYDROCHLORIDE
     Dosage: RECEIVED ON 15/MAY/2006, 05/JUN/2006, 17/JUL/2006, 26/JUN/2006, 07/AUG/2006, 20/NOV/2006
     Route: 042
  4. TYLENOL [Concomitant]
     Active Substance: ACETAMINOPHEN
     Route: 042
  5. ZOFRAN [Concomitant]
     Active Substance: ONDANSETRON HYDROCHLORIDE
     Dosage: RECEIVED ON 07/AUG/2006
     Route: 042
  6. CYTOXAN [Concomitant]
     Active Substance: CYCLOPHOSPHAMIDE
     Dosage: RECEIVED ON 15/MAY/2006, 05/JUN/2006
     Route: 042
  7. OXYCODONE [Concomitant]
     Active Substance: OXYCODONE
  8. ALOXI [Concomitant]
     Active Substance: PALONOSETRON HYDROCHLORIDE
     Dosage: RECEIVED ON 15/MAY/2006, 05/JUN/2006, 26/JUN/2006, 17/JUL/2006
     Route: 042
  9. RITUXAN [Suspect]
     Active Substance: RITUXIMAB
     Dosage: RECEIVED ON 15/MAY/2006, 05/JUN/2006
     Route: 042
  10. SOLU-MEDROL [Concomitant]
     Active Substance: METHYLPREDNISOLONE SODIUM SUCCINATE
     Dosage: RECEIVED ON 20/NOV/2006
     Route: 042
  11. CYTOXAN [Concomitant]
     Active Substance: CYCLOPHOSPHAMIDE
     Dosage: RECEIVED ON 26/JUN/2006, 17/JUL/2006
     Route: 042
  12. VINCRISTINE [Concomitant]
     Active Substance: VINCRISTINE
     Dosage: RECEIVED ON 15/MAY/2006, 05/JUN/2006, 26/JUN/2006,  17/JUL/2006
     Route: 042
  13. TYLENOL [Concomitant]
     Active Substance: ACETAMINOPHEN
     Dosage: RECEIVED ON  15/MAY/2006, 05/JUN/2006, 26/JUN/2006,  17/JUL/2006,  07/AUG/2006, 20/NOV/2006,
     Route: 048
  14. NEULASTA [Concomitant]
     Active Substance: PEGFILGRASTIM
     Route: 065
  15. HEXADROL [Concomitant]
     Active Substance: DEXAMETHASONE
     Dosage: RECEIVED ON  15/MAY/2006, 05/JUN/2006, 26/JUN/2006, 17/JUL/2006, 07/AUG/2006, 20/NOV/2006,
     Route: 042
  16. REGLAN [Concomitant]
     Active Substance: METOCLOPRAMIDE HYDROCHLORIDE
     Dosage: RECEIVED ON 20/NOV/2006
     Route: 042
  17. ADRIAMYCIN [Concomitant]
     Active Substance: DOXORUBICIN HYDROCHLORIDE
     Dosage: RECEIVED ON 26/JUN/2006, 17/JUL/2006
     Route: 042
  18. ADRIAMYCIN [Concomitant]
     Active Substance: DOXORUBICIN HYDROCHLORIDE
     Dosage: RECEIVED ON 15/MAY/2006, 05/JUN/2006
     Route: 042
  19. PREDNISONE. [Concomitant]
     Active Substance: PREDNISONE
     Dosage: WITH BREAKFAST AND LUNCH, RECEIVED ON 15/MAY/2006, 05/JUN/2006,  26/JUN/2006, 17/JUL/2006
     Route: 048

REACTIONS (7)
  - Nausea [Unknown]
  - Abdominal mass [Unknown]
  - Death [Fatal]
  - Pain [Recovered/Resolved]
  - Hyperhidrosis [Unknown]
  - Abdominal pain upper [Unknown]
  - Flushing [Unknown]

NARRATIVE: CASE EVENT DATE: 20070115
